FAERS Safety Report 9342933 (Version 3)
Quarter: 2013Q3

REPORT INFORMATION
  Report Type: Spontaneous
  Country: IT (occurrence: IT)
  Receive Date: 20130611
  Receipt Date: 20130725
  Transmission Date: 20140515
  Serious: Yes (Hospitalization)
  Sender: FDA-Public Use
  Company Number: PHHY2013IT058703

PATIENT
  Sex: Female

DRUGS (4)
  1. SINTROM [Suspect]
     Indication: THROMBOSIS PROPHYLAXIS
     Dosage: 1 DF, (1 MG) DAILY
     Route: 048
     Dates: start: 20050101, end: 20130519
  2. VOLTAREN [Suspect]
     Indication: PAIN
     Dosage: 1 DF, (75 MG/ 3 ML) TOTAL
     Route: 030
     Dates: start: 20130519, end: 20130519
  3. AMIODARONE [Concomitant]
     Indication: ATRIAL FIBRILLATION
     Dosage: 1 DF, UNK
     Route: 048
     Dates: start: 20111101, end: 20130522
  4. MUSCORIL [Concomitant]
     Indication: PAIN
     Dosage: 1 DF, (4 MG/ 2 ML)
     Route: 030

REACTIONS (1)
  - Subcutaneous haematoma [Recovering/Resolving]
